FAERS Safety Report 13042919 (Version 1)
Quarter: 2016Q4

REPORT INFORMATION
  Report Type: Spontaneous
  Country: US (occurrence: US)
  Receive Date: 20161219
  Receipt Date: 20161219
  Transmission Date: 20170207
  Serious: No
  Sender: FDA-Public Use
  Company Number: US-JAZZ-2016-US-022763

PATIENT
  Sex: Male

DRUGS (13)
  1. SOTALOL. [Concomitant]
     Active Substance: SOTALOL
  2. COUMADIN [Concomitant]
     Active Substance: WARFARIN SODIUM
  3. SIMVASTATIN. [Concomitant]
     Active Substance: SIMVASTATIN
  4. JANTOVEN [Concomitant]
     Active Substance: WARFARIN SODIUM
  5. XYREM [Suspect]
     Active Substance: SODIUM OXYBATE
     Indication: PRODUCT USED FOR UNKNOWN INDICATION
     Dosage: 2.25 G, BID
     Route: 048
     Dates: start: 200411, end: 2004
  6. XYREM [Suspect]
     Active Substance: SODIUM OXYBATE
     Dosage: 4.5 G, BID
     Route: 048
     Dates: start: 200501
  7. CALCIUM +VIT D [Concomitant]
     Active Substance: CALCIUM\VITAMIN D
  8. AMOXICILLIN. [Concomitant]
     Active Substance: AMOXICILLIN
  9. BETAPACE [Concomitant]
     Active Substance: SOTALOL HYDROCHLORIDE
  10. GLUCOPHAGE [Concomitant]
     Active Substance: METFORMIN HYDROCHLORIDE
  11. AUGMENTIN [Concomitant]
     Active Substance: AMOXICILLIN\CLAVULANATE POTASSIUM
  12. LISINOPRIL. [Concomitant]
     Active Substance: LISINOPRIL
  13. LORATADINE. [Concomitant]
     Active Substance: LORATADINE

REACTIONS (1)
  - Road traffic accident [Unknown]
